FAERS Safety Report 14495162 (Version 4)
Quarter: 2020Q1

REPORT INFORMATION
  Report Type: Report from Study
  Country: US (occurrence: US)
  Receive Date: 20180206
  Receipt Date: 20200214
  Transmission Date: 20200409
  Serious: Yes (Other)
  Sender: FDA-Public Use
  Company Number: US-ACTELION-A-US2018-166680

PATIENT
  Age: 56 Year
  Sex: Male

DRUGS (1)
  1. OPSUMIT [Suspect]
     Active Substance: MACITENTAN
     Indication: PULMONARY ARTERIAL HYPERTENSION
     Dosage: UNK
     Route: 048
     Dates: start: 20170603

REACTIONS (12)
  - Arrhythmia [Unknown]
  - Renal failure [Unknown]
  - Drug hypersensitivity [Not Recovered/Not Resolved]
  - Right ventricular failure [Recovered/Resolved]
  - Oedema [Recovered/Resolved]
  - Blood bilirubin increased [Unknown]
  - Dyspnoea exertional [Recovered/Resolved]
  - Fatigue [Recovered/Resolved]
  - Varices oesophageal [Unknown]
  - Weight increased [Recovered/Resolved]
  - Rash [Not Recovered/Not Resolved]
  - Muscular weakness [Recovered/Resolved]

NARRATIVE: CASE EVENT DATE: 201707
